FAERS Safety Report 14891829 (Version 1)
Quarter: 2018Q2

REPORT INFORMATION
  Report Type: Spontaneous
  Country: US (occurrence: US)
  Receive Date: 20180514
  Receipt Date: 20180514
  Transmission Date: 20180711
  Serious: Yes (Other)
  Sender: FDA-Public Use
  Company Number: PHEH2018US017675

PATIENT
  Age: 65 Year
  Sex: Female

DRUGS (3)
  1. ACEROLA [Concomitant]
     Active Substance: ACEROLA
     Indication: PRODUCT USED FOR UNKNOWN INDICATION
     Route: 065
  2. ZORTRESS [Suspect]
     Active Substance: EVEROLIMUS
     Indication: HEART TRANSPLANT
     Dosage: 3.25 MG, BID
     Route: 065
  3. TURMERIC [Concomitant]
     Active Substance: HERBALS\TURMERIC
     Indication: PRODUCT USED FOR UNKNOWN INDICATION
     Route: 065

REACTIONS (1)
  - Silicosis [Unknown]
